FAERS Safety Report 6438995-7 (Version None)
Quarter: 2009Q4

REPORT INFORMATION
  Report Type: 
  Country: None (occurrence: None)
  Receive Date: 20091113
  Receipt Date: 20091105
  Transmission Date: 20100525
  Serious: Yes (Hospitalization)
  Sender: FDA-Public Use
  Company Number: US-ROCHE-667413

PATIENT
  Sex: Male

DRUGS (1)
  1. ISOTRETINOIN [Suspect]
     Indication: DRUG USE FOR UNKNOWN INDICATION
     Dosage: THE PATIENT WAS DISPENSED ISOTRETINOIN ON 24 OCTOBER 2009.
     Route: 065
     Dates: start: 20091024, end: 20091031

REACTIONS (3)
  - HEADACHE [None]
  - PYREXIA [None]
  - RHABDOMYOLYSIS [None]
